FAERS Safety Report 4952345-4 (Version None)
Quarter: 2006Q1

REPORT INFORMATION
  Report Type: 
  Country: None (occurrence: None)
  Receive Date: 20060131
  Receipt Date: 20050517
  Transmission Date: 20060701
  Serious: Yes (Other)
  Sender: FDA-Public Use
  Company Number: WAES  0505USA02578

PATIENT
  Sex: Male

DRUGS (1)
  1. INVANZ [Suspect]
     Indication: DIABETIC FOOT
     Dosage: IV
     Route: 042
     Dates: start: 20040101, end: 20040101

REACTIONS (1)
  - CONVULSION [None]
